FAERS Safety Report 7928956-0 (Version None)
Quarter: 2011Q4

REPORT INFORMATION
  Report Type: 
  Country: None (occurrence: None)
  Receive Date: 20111118
  Receipt Date: 20111110
  Transmission Date: 20120403
  Serious: Yes (Hospitalization, Disabling, Other)
  Sender: FDA-Public Use
  Company Number: US-MERCK-1012USA02296

PATIENT
  Age: 57 Year
  Sex: Female
  Weight: 55 kg

DRUGS (13)
  1. FOSAMAX [Suspect]
     Route: 048
     Dates: start: 20001001, end: 20090401
  2. ASCORBIC ACID [Concomitant]
     Route: 065
  3. FOSAMAX PLUS D [Suspect]
     Indication: OSTEOPOROSIS
     Route: 048
     Dates: start: 20051108, end: 20090630
  4. FOSAMAX [Suspect]
     Route: 048
     Dates: start: 20000801, end: 20001001
  5. CENTRUM [Concomitant]
     Route: 065
  6. FOSAMAX [Suspect]
     Route: 048
     Dates: start: 20001001, end: 20090401
  7. FOSAMAX [Suspect]
     Indication: OSTEOPENIA
     Route: 048
     Dates: start: 20000801, end: 20050101
  8. CITRACAL [Concomitant]
     Route: 065
  9. CHOLECALCIFEROL [Concomitant]
     Route: 065
  10. FOSAMAX [Suspect]
     Indication: OSTEOPOROSIS
     Route: 048
     Dates: start: 20000801, end: 20050101
  11. BIOTIN [Concomitant]
     Route: 065
  12. FOSAMAX [Suspect]
     Route: 048
     Dates: start: 20000801, end: 20001001
  13. CALCIUM CARBONATE [Concomitant]
     Route: 065

REACTIONS (44)
  - COUGH [None]
  - HYPERTHYROIDISM [None]
  - PIRIFORMIS SYNDROME [None]
  - PAIN [None]
  - EYE INFECTION [None]
  - BASAL CELL CARCINOMA [None]
  - FALL [None]
  - MENISCUS LESION [None]
  - GASTROINTESTINAL DISORDER [None]
  - SINUSITIS [None]
  - PERIODONTITIS [None]
  - FEMUR FRACTURE [None]
  - GAIT DISTURBANCE [None]
  - MUSCLE STRAIN [None]
  - ROSACEA [None]
  - PANIC DISORDER [None]
  - HYPERKERATOSIS [None]
  - HYPERTENSION [None]
  - BASOSQUAMOUS CARCINOMA [None]
  - OSTEOARTHRITIS [None]
  - OBSESSIVE-COMPULSIVE DISORDER [None]
  - PROCEDURAL PAIN [None]
  - DRY SKIN [None]
  - SYNOVIAL CYST [None]
  - FRACTURE DELAYED UNION [None]
  - LOW TURNOVER OSTEOPATHY [None]
  - MUSCULAR WEAKNESS [None]
  - RECTAL HAEMORRHAGE [None]
  - GASTROOESOPHAGEAL REFLUX DISEASE [None]
  - FOOT DEFORMITY [None]
  - EYE DISORDER [None]
  - BRONCHIAL HYPERREACTIVITY [None]
  - STRESS FRACTURE [None]
  - NASOPHARYNGITIS [None]
  - ASTHMA [None]
  - MIDDLE INSOMNIA [None]
  - HOT FLUSH [None]
  - LIMB DISCOMFORT [None]
  - VULVOVAGINAL DRYNESS [None]
  - TIBIA FRACTURE [None]
  - OSTEOPOROSIS [None]
  - ANXIETY [None]
  - JOINT STIFFNESS [None]
  - INTERVERTEBRAL DISC DEGENERATION [None]
